FAERS Safety Report 4826918-3 (Version None)
Quarter: 2005Q4

REPORT INFORMATION
  Report Type: 
  Country: None (occurrence: None)
  Receive Date: 20051014
  Receipt Date: 20050721
  Transmission Date: 20060501
  Serious: No
  Sender: FDA-Public Use
  Company Number: 2005SP001999

PATIENT
  Age: 40 Year
  Sex: Female
  Weight: 79.3795 kg

DRUGS (4)
  1. LUNESTA [Suspect]
     Indication: INSOMNIA
     Dosage: 3 MG;HS;ORAL, 2 MG;HS;ORAL
     Route: 048
     Dates: start: 20050401, end: 20050401
  2. LUNESTA [Suspect]
     Indication: INSOMNIA
     Dosage: 3 MG;HS;ORAL, 2 MG;HS;ORAL
     Route: 048
     Dates: start: 20050401
  3. BLOOD PRESSURE MEDICATIONS [Concomitant]
  4. ZOLOFT [Concomitant]

REACTIONS (7)
  - DRUG INEFFECTIVE [None]
  - DYSGEUSIA [None]
  - FATIGUE [None]
  - HYPERHIDROSIS [None]
  - INITIAL INSOMNIA [None]
  - SOMNOLENCE [None]
  - THIRST [None]
